FAERS Safety Report 18772374 (Version 1)
Quarter: 2021Q1

REPORT INFORMATION
  Report Type: Spontaneous
  Country: US (occurrence: US)
  Receive Date: 20210121
  Receipt Date: 20210121
  Transmission Date: 20210419
  Serious: Yes (Hospitalization, Other)
  Sender: FDA-Public Use
  Company Number: US-SUNOVION-2021SUN000108

PATIENT
  Age: 21 Year
  Sex: Male
  Weight: 105.49 kg

DRUGS (7)
  1. LITHIUM. [Concomitant]
     Active Substance: LITHIUM
     Dosage: 450 UNK, BID
     Route: 048
  2. CAPLYTA [Concomitant]
     Active Substance: LUMATEPERONE
     Dosage: 42 MG
     Dates: start: 20200819, end: 20201020
  3. METOPROLOL. [Concomitant]
     Active Substance: METOPROLOL
     Dosage: 25 MG, BID
     Route: 048
  4. LISINOPRIL. [Concomitant]
     Active Substance: LISINOPRIL
     Dosage: 20 MG, QD
     Route: 048
  5. LATUDA [Suspect]
     Active Substance: LURASIDONE HYDROCHLORIDE
     Dosage: 60 MG
     Route: 048
     Dates: end: 2020
  6. LATUDA [Suspect]
     Active Substance: LURASIDONE HYDROCHLORIDE
     Indication: SCHIZOAFFECTIVE DISORDER
     Dosage: 20 MG
     Route: 048
     Dates: end: 202010
  7. LATUDA [Suspect]
     Active Substance: LURASIDONE HYDROCHLORIDE
     Dosage: 40 MG
     Route: 048
     Dates: start: 2020, end: 2020

REACTIONS (9)
  - Schizophrenia [Recovering/Resolving]
  - Mania [Recovering/Resolving]
  - Pressure of speech [Recovering/Resolving]
  - Glycosylated haemoglobin increased [Recovering/Resolving]
  - Thinking abnormal [Recovering/Resolving]
  - Decreased appetite [Recovering/Resolving]
  - Weight decreased [Recovering/Resolving]
  - Affect lability [Recovering/Resolving]
  - Off label use [Unknown]
